FAERS Safety Report 21897163 (Version 2)
Quarter: 2023Q1

REPORT INFORMATION
  Report Type: Spontaneous
  Country: DE (occurrence: DE)
  Receive Date: 20230123
  Receipt Date: 20230126
  Transmission Date: 20230417
  Serious: Yes (Other)
  Sender: FDA-Public Use
  Company Number: None

PATIENT
  Age: 52 Year
  Sex: Female
  Weight: 100 kg

DRUGS (1)
  1. DOTAREM [Suspect]
     Active Substance: GADOTERATE MEGLUMINE
     Indication: Magnetic resonance imaging
     Route: 042
     Dates: start: 20221201, end: 20221201

REACTIONS (4)
  - Anaphylactic shock [Recovered/Resolved]
  - Lymphadenopathy [Unknown]
  - Face oedema [Unknown]
  - Rash [Unknown]

NARRATIVE: CASE EVENT DATE: 20221201
